FAERS Safety Report 9809830 (Version 11)
Quarter: 2016Q3

REPORT INFORMATION
  Report Type: Spontaneous
  Country: US (occurrence: US)
  Receive Date: 20140110
  Receipt Date: 20160927
  Transmission Date: 20161109
  Serious: Yes (Death, Hospitalization)
  Sender: FDA-Public Use
  Company Number: US-SANOFI-AVENTIS-2013SA067299

PATIENT
  Age: 64 Year
  Sex: Male

DRUGS (43)
  1. LASIX [Concomitant]
     Active Substance: FUROSEMIDE
  2. ACTOS [Concomitant]
     Active Substance: PIOGLITAZONE HYDROCHLORIDE
  3. KLOR-CON [Concomitant]
     Active Substance: POTASSIUM CHLORIDE
  4. METHADONE [Concomitant]
     Active Substance: METHADONE HYDROCHLORIDE
  5. ALTACE [Concomitant]
     Active Substance: RAMIPRIL
  6. LACTOBACILLUS ACIDOPHILUS\LACTOBACILLUS BULGARICUS [Concomitant]
     Active Substance: LACTOBACILLUS ACIDOPHILUS\LACTOBACILLUS DELBRUECKII SUBSP. BULGARICUS
     Route: 048
     Dates: start: 20110908, end: 20111207
  7. PRILOSEC [Concomitant]
     Active Substance: OMEPRAZOLE MAGNESIUM
     Route: 048
     Dates: start: 20110908, end: 20111207
  8. RESTORIL [Concomitant]
     Active Substance: TEMAZEPAM
     Route: 048
     Dates: start: 20110908, end: 20111207
  9. METOPROLOL. [Concomitant]
     Active Substance: METOPROLOL
     Route: 048
  10. ASPIRIN. [Concomitant]
     Active Substance: ASPIRIN
  11. TRAMADOL HYDROCHLORIDE. [Concomitant]
     Active Substance: TRAMADOL HYDROCHLORIDE
     Route: 048
  12. FOLIC ACID. [Concomitant]
     Active Substance: FOLIC ACID
     Dosage: 1 MG
     Dates: start: 20080828
  13. IRON [Concomitant]
     Active Substance: IRON
  14. MORPHINE [Concomitant]
     Active Substance: MORPHINE
     Dosage: 1-4 MG
     Route: 042
     Dates: start: 20110908, end: 20111207
  15. BENICAR [Concomitant]
     Active Substance: OLMESARTAN MEDOXOMIL
  16. TRAMADOL HYDROCHLORIDE. [Concomitant]
     Active Substance: TRAMADOL HYDROCHLORIDE
     Dosage: DOSE: 1-2
  17. TRAZODONE HYDROCHLORIDE. [Concomitant]
     Active Substance: TRAZODONE HYDROCHLORIDE
  18. SPIRIVA [Concomitant]
     Active Substance: TIOTROPIUM BROMIDE MONOHYDRATE
     Route: 055
     Dates: start: 20110908, end: 20111207
  19. LOVENOX [Concomitant]
     Active Substance: ENOXAPARIN SODIUM
     Dates: start: 20110908, end: 20111207
  20. ZAROXOLYN [Concomitant]
     Active Substance: METOLAZONE
  21. DIOVAN [Concomitant]
     Active Substance: VALSARTAN
  22. CARDURA [Concomitant]
     Active Substance: DOXAZOSIN MESYLATE
  23. DILAUDID [Concomitant]
     Active Substance: HYDROMORPHONE HYDROCHLORIDE
  24. ULTRAM [Concomitant]
     Active Substance: TRAMADOL HYDROCHLORIDE
  25. PLAVIX [Suspect]
     Active Substance: CLOPIDOGREL BISULFATE
     Indication: CARDIAC DISORDER
     Route: 048
     Dates: start: 20060101, end: 20111207
  26. ALDACTONE [Concomitant]
     Active Substance: SPIRONOLACTONE
  27. ZOCOR [Concomitant]
     Active Substance: SIMVASTATIN
  28. METFORMIN [Concomitant]
     Active Substance: METFORMIN HYDROCHLORIDE
  29. LANTUS [Concomitant]
     Active Substance: INSULIN GLARGINE
     Dosage: IN THE MORNING DOSE:40 UNIT(S)
     Route: 058
  30. NOVOLOG [Concomitant]
     Active Substance: INSULIN ASPART
     Dosage: DOSE: 5-40 UNITS
     Route: 058
  31. POTASSIUM CHLORIDE. [Concomitant]
     Active Substance: POTASSIUM CHLORIDE
     Route: 048
  32. LISINOPRIL. [Concomitant]
     Active Substance: LISINOPRIL
  33. ADVAIR HFA [Concomitant]
     Active Substance: FLUTICASONE PROPIONATE\SALMETEROL XINAFOATE
     Dosage: 250/50 MCG
     Route: 055
  34. OXYCONTIN [Concomitant]
     Active Substance: OXYCODONE HYDROCHLORIDE
     Dosage: 20 MG
     Dates: start: 20080828
  35. COLACE [Concomitant]
     Active Substance: DOCUSATE SODIUM
     Dosage: 100 MG
     Dates: start: 20080828
  36. CELEBREX [Concomitant]
     Active Substance: CELECOXIB
     Dosage: 100 MG
     Dates: start: 20080828
  37. TOPROL XL [Concomitant]
     Active Substance: METOPROLOL SUCCINATE
     Route: 048
  38. METOPROLOL SUCCINATE. [Concomitant]
     Active Substance: METOPROLOL SUCCINATE
  39. POTASSIUM CHLORIDE. [Concomitant]
     Active Substance: POTASSIUM CHLORIDE
     Dosage: SUSTAINED RELEASE CAPSULE
     Route: 048
  40. CLINDAMYCIN HYDROCHLORIDE. [Concomitant]
     Active Substance: CLINDAMYCIN HYDROCHLORIDE
     Route: 048
     Dates: start: 20110910
  41. HYDROCHLOROTHIAZIDE. [Concomitant]
     Active Substance: HYDROCHLOROTHIAZIDE
     Route: 048
  42. FLOMAX [Concomitant]
     Active Substance: TAMSULOSIN HYDROCHLORIDE
  43. PERCOCET [Concomitant]
     Active Substance: ACETAMINOPHEN\OXYCODONE HYDROCHLORIDE
     Dates: start: 20110908, end: 20111207

REACTIONS (21)
  - Limb injury [Unknown]
  - Pyrexia [Unknown]
  - Wound haemorrhage [Unknown]
  - Pain [Recovered/Resolved]
  - Burning sensation [Unknown]
  - Swelling [Unknown]
  - Hypovolaemic shock [Fatal]
  - Joint swelling [Unknown]
  - Vomiting [Unknown]
  - Urinary retention [Unknown]
  - Diarrhoea [Unknown]
  - Gastrointestinal haemorrhage [Fatal]
  - Weight increased [Unknown]
  - Dyspnoea [Unknown]
  - Peripheral swelling [Unknown]
  - Constipation [Unknown]
  - Chest pain [Unknown]
  - Red blood cells urine positive [Unknown]
  - Nausea [Unknown]
  - Chills [Unknown]
  - Erythema [Unknown]

NARRATIVE: CASE EVENT DATE: 201110
